FAERS Safety Report 24623433 (Version 3)
Quarter: 2025Q1

REPORT INFORMATION
  Report Type: Report from Study
  Country: US (occurrence: US)
  Receive Date: 20241115
  Receipt Date: 20250107
  Transmission Date: 20250409
  Serious: Yes (Other)
  Sender: BIOGEN
  Company Number: US-BIOGEN-2024BI01286534

PATIENT
  Sex: Female

DRUGS (1)
  1. TYSABRI [Suspect]
     Active Substance: NATALIZUMAB
     Indication: Multiple sclerosis
     Route: 050
     Dates: start: 20180504

REACTIONS (6)
  - Skin cancer [Unknown]
  - Postoperative wound infection [Unknown]
  - Glucose tolerance impaired [Unknown]
  - Mobility decreased [Unknown]
  - Wound dehiscence [Unknown]
  - Weight decreased [Unknown]
